FAERS Safety Report 6969149-3 (Version None)
Quarter: 2010Q3

REPORT INFORMATION
  Report Type: 
  Country: None (occurrence: None)
  Receive Date: 20100907
  Receipt Date: 20100830
  Transmission Date: 20110219
  Serious: Yes (Hospitalization)
  Sender: FDA-Public Use
  Company Number: JP-NOVOPROD-314023

PATIENT
  Age: 72 Year
  Sex: Male
  Weight: 58 kg

DRUGS (2)
  1. NOVORAPID 30 MIX CHU PENFILL [Suspect]
     Indication: DIABETES MELLITUS
     Dosage: 12 U, QD
     Route: 058
     Dates: start: 20060130, end: 20100813
  2. LANTUS [Concomitant]
     Dosage: UNK
     Dates: start: 20100830

REACTIONS (2)
  - EOSINOPHIL COUNT INCREASED [None]
  - URTICARIA [None]
